FAERS Safety Report 6528117-6 (Version None)
Quarter: 2010Q1

REPORT INFORMATION
  Report Type: 
  Country: None (occurrence: None)
  Receive Date: 20100106
  Receipt Date: 20091224
  Transmission Date: 20100710
  Serious: Yes (Hospitalization, Other)
  Sender: FDA-Public Use
  Company Number: IT-PFIZER INC-2009310295

PATIENT
  Age: 35 Year
  Sex: Female

DRUGS (5)
  1. SERTRALINE HCL [Suspect]
     Indication: MAJOR DEPRESSION
  2. PAROXETINE [Suspect]
     Indication: MAJOR DEPRESSION
  3. CITALOPRAM [Suspect]
     Indication: MAJOR DEPRESSION
     Dosage: 20 MG, UNK
  4. OLANZAPINE [Suspect]
     Indication: MAJOR DEPRESSION
  5. QUETIAPINE [Suspect]
     Indication: MAJOR DEPRESSION

REACTIONS (3)
  - AGITATION [None]
  - DEPRESSION [None]
  - PANIC ATTACK [None]
